FAERS Safety Report 9618693 (Version 1)
Quarter: 2013Q4

REPORT INFORMATION
  Report Type: Spontaneous
  Country: US (occurrence: US)
  Receive Date: 20131014
  Receipt Date: 20131014
  Transmission Date: 20140711
  Serious: Yes (Hospitalization)
  Sender: FDA-Public Use
  Company Number: US-SA-2013SA099477

PATIENT
  Sex: Male

DRUGS (3)
  1. LANTUS SOLOSTAR [Suspect]
     Dosage: DOSE:2400 UNIT(S)
     Route: 058
  2. NOVOLOG [Suspect]
     Dosage: DOSE:800 UNIT(S)
     Route: 065
  3. SOLOSTAR [Concomitant]

REACTIONS (2)
  - Suicide attempt [Unknown]
  - Intentional overdose [Unknown]
